FAERS Safety Report 22824639 (Version 2)
Quarter: 2024Q2

REPORT INFORMATION
  Report Type: Spontaneous
  Country: US (occurrence: US)
  Receive Date: 20230815
  Receipt Date: 20240514
  Transmission Date: 20240716
  Serious: No
  Sender: FDA-Public Use
  Company Number: US-ANIPHARMA-2023-US-015144

PATIENT
  Age: 39 Year
  Sex: Male

DRUGS (1)
  1. CORTICOTROPIN [Suspect]
     Active Substance: CORTICOTROPIN
     Indication: Multiple sclerosis
     Dosage: 1ML 1 TIME DAILY FOR 5 DAYS FOR EVERY 3 MONTHS SUBCUTANEOUSLY / 1 ML DAILY FOR 15 DAYS
     Route: 058
     Dates: start: 202305

REACTIONS (8)
  - Pain in extremity [Unknown]
  - Mood altered [Unknown]
  - Insomnia [Unknown]
  - Fatigue [Unknown]
  - Urinary incontinence [Unknown]
  - Gait disturbance [Unknown]
  - Impaired quality of life [Unknown]
  - Back pain [Unknown]
